FAERS Safety Report 10666948 (Version 1)
Quarter: 2014Q4

REPORT INFORMATION
  Report Type: Spontaneous
  Country: US (occurrence: US)
  Receive Date: 20141222
  Receipt Date: 20141222
  Transmission Date: 20150529
  Serious: No
  Sender: FDA-Public Use
  Company Number: US-BIOGENIDEC-2014BI134945

PATIENT
  Sex: Female

DRUGS (18)
  1. ASPIRIN. [Concomitant]
     Active Substance: ASPIRIN
  2. PHAZYME [Concomitant]
     Active Substance: DIMETHICONE 410
  3. VESICARE [Concomitant]
     Active Substance: SOLIFENACIN SUCCINATE
  4. WELCHOL [Concomitant]
     Active Substance: COLESEVELAM HYDROCHLORIDE
  5. VITAMIN B12 [Concomitant]
     Active Substance: CYANOCOBALAMIN
  6. ALPRAZOLAM ER [Concomitant]
     Active Substance: ALPRAZOLAM
  7. COENZYME Q10 [Concomitant]
     Active Substance: UBIDECARENONE
  8. AVONEX [Suspect]
     Active Substance: INTERFERON BETA-1A
     Indication: MULTIPLE SCLEROSIS
     Route: 030
     Dates: start: 20110315
  9. MULTIVITAMIN [Concomitant]
     Active Substance: VITAMINS
  10. BUPROPRION HCL ER [Concomitant]
  11. FISH OIL [Concomitant]
     Active Substance: FISH OIL
  12. NUGIGIL [Concomitant]
  13. OMEPRAZOLE. [Concomitant]
     Active Substance: OMEPRAZOLE
  14. CHOLESTYRAMINE LIGHT [Concomitant]
     Active Substance: CHOLESTYRAMINE
  15. VITAMIN D [Concomitant]
     Active Substance: CHOLECALCIFEROL
  16. OMEGA 3 [Concomitant]
     Active Substance: OMEGA-3 FATTY ACIDS
  17. POTASSIUM IODIDE [Concomitant]
     Active Substance: POTASSIUM IODIDE
  18. ARMOUR THYROID [Concomitant]
     Active Substance: THYROID, PORCINE\THYROID, UNSPECIFIED

REACTIONS (2)
  - Gait disturbance [Unknown]
  - Headache [Unknown]
